FAERS Safety Report 17510866 (Version 1)
Quarter: 2020Q1

REPORT INFORMATION
  Report Type: Report from Study
  Country: US (occurrence: US)
  Receive Date: 20200306
  Receipt Date: 20200306
  Transmission Date: 20200409
  Serious: Yes (Hospitalization, Other)
  Sender: FDA-Public Use
  Company Number: US-ACTELION-A-NJ2019-188171

PATIENT
  Age: 64 Year
  Sex: Female

DRUGS (17)
  1. OMEPRAZOLE. [Concomitant]
     Active Substance: OMEPRAZOLE
  2. DICLOFENAC [Concomitant]
     Active Substance: DICLOFENAC
  3. OPSUMIT [Suspect]
     Active Substance: MACITENTAN
     Indication: PULMONARY ARTERIAL HYPERTENSION
     Dosage: 10 MG, QD
     Route: 048
     Dates: start: 20180730
  4. GLIPIZIDE. [Concomitant]
     Active Substance: GLIPIZIDE
  5. METFORMIN [Concomitant]
     Active Substance: METFORMIN HYDROCHLORIDE
  6. HUMIRA [Concomitant]
     Active Substance: ADALIMUMAB
  7. ACTEMRA [Concomitant]
     Active Substance: TOCILIZUMAB
  8. TYLENOL [Concomitant]
     Active Substance: ACETAMINOPHEN
  9. FLONASE [Concomitant]
     Active Substance: FLUTICASONE PROPIONATE
  10. SIMVASTATIN. [Concomitant]
     Active Substance: SIMVASTATIN
  11. VENTOLIN HFA [Concomitant]
     Active Substance: ALBUTEROL SULFATE
  12. FOLIC ACID. [Concomitant]
     Active Substance: FOLIC ACID
  13. ASPIRIN. [Concomitant]
     Active Substance: ASPIRIN
  14. CALCIUM CARBONATE W/COLECALCIFEROL [Concomitant]
     Active Substance: CALCIUM CARBONATE\CHOLECALCIFEROL
  15. SILDENAFIL. [Concomitant]
     Active Substance: SILDENAFIL
  16. VOLTAREN [Concomitant]
     Active Substance: DICLOFENAC SODIUM
  17. AZATHIOPRINE. [Concomitant]
     Active Substance: AZATHIOPRINE

REACTIONS (16)
  - Chills [Unknown]
  - Myalgia [Unknown]
  - Dyspnoea [Unknown]
  - Nasal congestion [Unknown]
  - Atypical pneumonia [Unknown]
  - Oxygen saturation decreased [Unknown]
  - Bronchitis [Unknown]
  - Cough [Unknown]
  - Urinary tract infection [Unknown]
  - Interstitial lung disease [Unknown]
  - Sepsis [Unknown]
  - Bacteraemia [Unknown]
  - Oropharyngeal pain [Unknown]
  - Pyrexia [Unknown]
  - Lower respiratory tract congestion [Unknown]
  - Upper respiratory tract infection [Unknown]

NARRATIVE: CASE EVENT DATE: 20190225
